FAERS Safety Report 25405471 (Version 2)
Quarter: 2025Q2

REPORT INFORMATION
  Report Type: Report from Study
  Country: US (occurrence: US)
  Receive Date: 20250606
  Receipt Date: 20250625
  Transmission Date: 20250716
  Serious: Yes (Hospitalization, Other)
  Sender: ALEXION PHARMACEUTICALS
  Company Number: US-ASTRAZENECA-202506USA001850US

PATIENT
  Age: 43 Year

DRUGS (5)
  1. STRENSIQ [Suspect]
     Active Substance: ASFOTASE ALFA
     Indication: Phosphorus metabolism disorder
     Dosage: 1 MILLIGRAM/KILOGRAM, SIX TIMES/WEEK
     Route: 065
  2. TORADOL [Concomitant]
     Active Substance: KETOROLAC TROMETHAMINE
     Route: 065
  3. BENADRYL [Concomitant]
     Active Substance: DIPHENHYDRAMINE HYDROCHLORIDE
     Route: 065
  4. REGLAN [Concomitant]
     Active Substance: METOCLOPRAMIDE HYDROCHLORIDE
     Route: 065
  5. DILAUDID [Concomitant]
     Active Substance: HYDROMORPHONE HYDROCHLORIDE
     Route: 065

REACTIONS (12)
  - Drug hypersensitivity [Unknown]
  - Pyrexia [Recovered/Resolved]
  - Chills [Unknown]
  - Nausea [Unknown]
  - Blood calcium decreased [Unknown]
  - Red blood cell count decreased [Unknown]
  - Headache [Unknown]
  - Arthralgia [Unknown]
  - Bone pain [Unknown]
  - Dizziness [Unknown]
  - Fatigue [Unknown]
  - Influenza like illness [Unknown]
